FAERS Safety Report 8921256 (Version 1)
Quarter: 2012Q4

REPORT INFORMATION
  Report Type: 
  Country: MX (occurrence: MX)
  Receive Date: 20121121
  Receipt Date: 20121121
  Transmission Date: 20130627
  Serious: Yes (Hospitalization, Other)
  Sender: FDA-Public Use
  Company Number: MX-BRISTOL-MYERS SQUIBB COMPANY-17126772

PATIENT
  Age: 53 Year
  Sex: Female

DRUGS (1)
  1. OHRENCIA [Suspect]
     Indication: RHEUMATOID ARTHRITIS
     Dosage: October 25th, 2012
     Route: 042
     Dates: start: 20121025

REACTIONS (4)
  - Diarrhoea [Recovered/Resolved]
  - Pyrexia [Recovered/Resolved]
  - Bone pain [Recovered/Resolved]
  - Malaise [Recovered/Resolved]
